FAERS Safety Report 9696665 (Version 1)
Quarter: 2013Q4

REPORT INFORMATION
  Report Type: Spontaneous
  Country: US (occurrence: None)
  Receive Date: 20131115
  Receipt Date: 20131115
  Transmission Date: 20140711
  Serious: Yes (Hospitalization)
  Sender: FDA-Public Use
  Company Number: BR13-398-AE

PATIENT
  Age: 12 Month
  Sex: Male

DRUGS (1)
  1. BUPRENORPHINE / NALOXONE DIHYDRATE [Suspect]
     Route: 048

REACTIONS (5)
  - Overdose [None]
  - Vomiting [None]
  - Accidental exposure to product by child [None]
  - Victim of child abuse [None]
  - Child neglect [None]
